FAERS Safety Report 21265041 (Version 1)
Quarter: 2022Q3

REPORT INFORMATION
  Report Type: Spontaneous
  Country: US (occurrence: None)
  Receive Date: 20220826
  Receipt Date: 20220826
  Transmission Date: 20221026
  Serious: Yes (Hospitalization)
  Sender: FDA-Public Use
  Company Number: None

PATIENT
  Age: 70 Year
  Sex: Male
  Weight: 101 kg

DRUGS (1)
  1. REMDESIVIR [Suspect]
     Active Substance: REMDESIVIR
     Indication: Infection
     Dosage: 100 MG EVERY DAY IV
     Route: 042
     Dates: start: 20220720, end: 20220721

REACTIONS (1)
  - Angioedema [None]

NARRATIVE: CASE EVENT DATE: 20220721
